FAERS Safety Report 10196857 (Version 2)
Quarter: 2014Q4

REPORT INFORMATION
  Report Type: Spontaneous
  Country: US (occurrence: US)
  Receive Date: 20140527
  Receipt Date: 20141022
  Transmission Date: 20150528
  Serious: Yes (Other)
  Sender: FDA-Public Use
  Company Number: US-009507513-1403USA014233

PATIENT
  Age: 77 Year
  Sex: Female
  Weight: 88.89 kg

DRUGS (2)
  1. INSULIN [Concomitant]
     Active Substance: INSULIN NOS
     Indication: DIABETES MELLITUS
     Dosage: UNK, UNKNOWN
  2. OXYTROL FOR WOMEN [Suspect]
     Active Substance: OXYBUTYNIN
     Indication: PRODUCT USED FOR UNKNOWN INDICATION
     Dosage: 1 DF, UNKNOWN
     Route: 062

REACTIONS (10)
  - Fall [Unknown]
  - Application site erythema [Unknown]
  - Application site pain [Unknown]
  - Rotator cuff syndrome [Unknown]
  - Cough [Unknown]
  - Application site discolouration [Recovering/Resolving]
  - Product use issue [Unknown]
  - Oropharyngeal discomfort [Unknown]
  - Rotator cuff repair [Unknown]
  - Rash [Recovered/Resolved]

NARRATIVE: CASE EVENT DATE: 2014
